FAERS Safety Report 20107565 (Version 3)
Quarter: 2024Q1

REPORT INFORMATION
  Report Type: Spontaneous
  Country: US (occurrence: US)
  Receive Date: 20211124
  Receipt Date: 20240311
  Transmission Date: 20240410
  Serious: No
  Sender: FDA-Public Use
  Company Number: US-PFIZER INC-202101587973

PATIENT
  Age: 80 Year
  Sex: Male
  Weight: 78.93 kg

DRUGS (5)
  1. EUCRISA [Suspect]
     Active Substance: CRISABOROLE
     Indication: Fungal infection
     Dosage: 60 G
  2. EUCRISA [Suspect]
     Active Substance: CRISABOROLE
     Indication: Rash macular
     Dosage: ONCE A DAY USE IT ON 3 SPOTS ON FACE
  3. EUCRISA [Suspect]
     Active Substance: CRISABOROLE
     Indication: Eczema
     Dosage: UNK, 1X/DAY
     Route: 061
  4. EUCRISA [Suspect]
     Active Substance: CRISABOROLE
     Dosage: UNK, 2X/DAY (APPLY A THIN LAYER TO AA BID FOR4 WEEKS, PRN FLARES)
     Route: 061
  5. EUCRISA [Suspect]
     Active Substance: CRISABOROLE
     Dosage: APPLY TO RASH EARS + FACE BID (TWO TIMES IN A DAY)

REACTIONS (6)
  - Expired product administered [Unknown]
  - Off label use [Unknown]
  - Off label use [Unknown]
  - Drug effective for unapproved indication [Unknown]
  - Intentional product misuse [Unknown]
  - Rash [Unknown]
